FAERS Safety Report 4853129-8 (Version None)
Quarter: 2005Q4

REPORT INFORMATION
  Report Type: 
  Country: None (occurrence: None)
  Receive Date: 20051212
  Receipt Date: 20051128
  Transmission Date: 20060501
  Serious: No
  Sender: FDA-Public Use
  Company Number: 2005PV004890

PATIENT
  Age: 31 Year
  Sex: Female
  Weight: 60.782 kg

DRUGS (5)
  1. SYMLIN [Suspect]
     Indication: DIABETES MELLITUS INSULIN-DEPENDENT
     Dosage: SEE IMAGE, SUBCUTANEOUS
     Route: 058
     Dates: start: 20050902, end: 20051101
  2. SYMLIN [Suspect]
     Indication: DIABETES MELLITUS INSULIN-DEPENDENT
     Dosage: SEE IMAGE, SUBCUTANEOUS
     Route: 058
     Dates: start: 20051101
  3. LANTUS [Concomitant]
  4. HUMALOG [Concomitant]
  5. ACTOS [Concomitant]

REACTIONS (14)
  - BLOOD GLUCOSE FLUCTUATION [None]
  - CONSTIPATION [None]
  - CONVULSION [None]
  - DIARRHOEA [None]
  - FATIGUE [None]
  - FEAR [None]
  - HYPERHIDROSIS [None]
  - HYPOGLYCAEMIA [None]
  - LOSS OF CONSCIOUSNESS [None]
  - MIGRAINE [None]
  - NAUSEA [None]
  - SCREAMING [None]
  - TREMOR [None]
  - WEIGHT DECREASED [None]
